FAERS Safety Report 5270612-4 (Version None)
Quarter: 2007Q1

REPORT INFORMATION
  Report Type: 
  Country: None (occurrence: None)
  Receive Date: 20061213
  Receipt Date: 20031202
  Transmission Date: 20070707
  Serious: Yes (Other)
  Sender: FDA-Public Use
  Company Number: 2003UW15897

PATIENT

DRUGS (2)
  1. IRESSA [Suspect]
     Dosage: 250 MG PO
     Route: 048
  2. NEXIUM [Suspect]
     Dosage: 20 MG PO
     Route: 048

REACTIONS (2)
  - DRUG INTERACTION [None]
  - DYSPEPSIA [None]
